FAERS Safety Report 8605809-6 (Version None)
Quarter: 2012Q3

REPORT INFORMATION
  Report Type: 
  Country: None (occurrence: None)
  Receive Date: 20120820
  Receipt Date: 20120807
  Transmission Date: 20120928
  Serious: Yes (Hospitalization)
  Sender: FDA-Public Use
  Company Number: US-GLAXOSMITHKLINE-A0944643A

PATIENT
  Age: 71 Year
  Sex: Male

DRUGS (1)
  1. AVANDIA [Suspect]
     Indication: DIABETES MELLITUS
     Dosage: 2MG PER DAY
     Route: 048
     Dates: start: 20050301, end: 20090101

REACTIONS (8)
  - MYOCARDIAL INFARCTION [None]
  - BLINDNESS UNILATERAL [None]
  - THROMBOSIS [None]
  - CAROTID ARTERY DISEASE [None]
  - CORONARY ARTERY THROMBOSIS [None]
  - CEREBROVASCULAR ACCIDENT [None]
  - CORONARY ARTERY DISEASE [None]
  - STENT PLACEMENT [None]
